FAERS Safety Report 18941335 (Version 1)
Quarter: 2021Q1

REPORT INFORMATION
  Report Type: Spontaneous
  Country: US (occurrence: US)
  Receive Date: 20210225
  Receipt Date: 20210225
  Transmission Date: 20210420
  Serious: No
  Sender: FDA-Public Use
  Company Number: US-GW PHARMA-202102USGW00628

PATIENT

DRUGS (2)
  1. EPIDIOLEX [Suspect]
     Active Substance: CANNABIDIOL
     Indication: EPILEPSY
     Dosage: 600 MILLIGRAM, BID
     Route: 048
     Dates: start: 20190316
  2. EPIDIOLEX [Suspect]
     Active Substance: CANNABIDIOL
     Dosage: ACCIDENTAL DOUBLE DOSE (1200 MG, BID)
     Route: 048
     Dates: start: 202102

REACTIONS (2)
  - Wrong dose [Unknown]
  - Somnolence [Not Recovered/Not Resolved]

NARRATIVE: CASE EVENT DATE: 20210208
